FAERS Safety Report 7356408-8 (Version None)
Quarter: 2011Q1

REPORT INFORMATION
  Report Type: 
  Country: None (occurrence: None)
  Receive Date: 20110316
  Receipt Date: 20110309
  Transmission Date: 20110831
  Serious: Yes (Other)
  Sender: FDA-Public Use
  Company Number: US-ELI_LILLY_AND_COMPANY-US201003007252

PATIENT
  Sex: Male

DRUGS (6)
  1. HUMALOG [Suspect]
     Indication: DIABETES MELLITUS
     Dosage: UNK, AS NEEDED
     Dates: start: 20000101
  2. HUMALOG [Suspect]
     Dosage: 100 U, DAILY (1/D)
     Dates: start: 20000101
  3. LANTUS [Concomitant]
     Dosage: 40 U, UNK
  4. HUMALOG [Suspect]
     Dosage: 100 U, DAILY (1/D)
     Dates: start: 20000101
  5. NOVOLIN 70/30 [Concomitant]
     Dosage: UNK, EACH EVENING
  6. HUMALOG [Suspect]
     Dosage: UNK, AS NEEDED
     Dates: start: 20000101

REACTIONS (4)
  - DEAFNESS [None]
  - BLOOD GLUCOSE INCREASED [None]
  - EXPIRED DRUG ADMINISTERED [None]
  - DRUG DISPENSING ERROR [None]
